FAERS Safety Report 26157050 (Version 1)
Quarter: 2025Q4

REPORT INFORMATION
  Report Type: Spontaneous
  Country: EU (occurrence: EU)
  Receive Date: 20251215
  Receipt Date: 20251215
  Transmission Date: 20260117
  Serious: Yes (Other)
  Sender: ROCHE
  Company Number: EU-ROCHE-10000134601

PATIENT

DRUGS (3)
  1. RITUXIMAB [Suspect]
     Active Substance: RITUXIMAB
     Indication: Chronic lymphocytic leukaemia
  2. VENCLEXTA [Suspect]
     Active Substance: VENETOCLAX
     Indication: Chronic lymphocytic leukaemia
  3. OBINUTUZUMAB [Suspect]
     Active Substance: OBINUTUZUMAB
     Indication: Chronic lymphocytic leukaemia

REACTIONS (19)
  - Neutropenia [Unknown]
  - Pneumonia [Unknown]
  - Pericardial effusion [Unknown]
  - Colorectal cancer [Unknown]
  - Atrial fibrillation [Unknown]
  - Autoimmune haemolytic anaemia [Unknown]
  - Sepsis [Unknown]
  - Acute kidney injury [Unknown]
  - Herpes zoster [Unknown]
  - Hyponatraemia [Unknown]
  - Richter^s syndrome [Unknown]
  - Vestibular neuronitis [Unknown]
  - Anaemia [Unknown]
  - Osteonecrosis [Unknown]
  - Chronic graft versus host disease [Unknown]
  - Pyoderma gangrenosum [Unknown]
  - Basal cell carcinoma [Unknown]
  - Infusion related reaction [Unknown]
  - Pneumonia [Unknown]
